FAERS Safety Report 7990518-7 (Version None)
Quarter: 2011Q4

REPORT INFORMATION
  Report Type: 
  Country: None (occurrence: None)
  Receive Date: 20111219
  Receipt Date: 20101213
  Transmission Date: 20120403
  Serious: No
  Sender: FDA-Public Use
  Company Number: US-ASTRAZENECA-2010SE58833

PATIENT
  Age: 73 Year
  Sex: Female

DRUGS (5)
  1. METFORMIN HCL [Concomitant]
     Indication: DIABETES MELLITUS
  2. METOPROLOL TARTRATE [Concomitant]
     Indication: HYPERTENSION
  3. CRESTOR [Suspect]
     Indication: HYPERCHOLESTEROLAEMIA
     Route: 048
     Dates: start: 20101001
  4. ACTOPLUS MET [Suspect]
     Indication: TYPE 1 DIABETES MELLITUS
     Dosage: 15/100 MG ONCE DIALY
     Route: 048
     Dates: start: 20101001
  5. LIPITOR [Concomitant]
     Indication: HYPERCHOLESTEROLAEMIA

REACTIONS (2)
  - EXTRASYSTOLES [None]
  - HEADACHE [None]
